FAERS Safety Report 7606292-X (Version None)
Quarter: 2011Q3

REPORT INFORMATION
  Report Type: 
  Country: None (occurrence: None)
  Receive Date: 20110713
  Receipt Date: 20110705
  Transmission Date: 20111222
  Serious: Yes (Hospitalization, Other)
  Sender: FDA-Public Use
  Company Number: US-BAYER-2011-018455

PATIENT
  Age: 32 Year
  Sex: Female
  Weight: 79 kg

DRUGS (8)
  1. DROSPIRENONE AND ETHINYL ESTRADIOL [Suspect]
     Indication: ACNE
     Dosage: UNK UNK, QD
     Route: 048
     Dates: start: 20021101, end: 20100301
  2. PREDNISONE [Concomitant]
     Indication: DEMYELINATING POLYNEUROPATHY
     Dosage: 10 MG, QD
     Route: 048
     Dates: start: 20090601, end: 20100701
  3. GABAPENTIN [Concomitant]
  4. YAZ [Suspect]
     Indication: ACNE
     Dosage: UNK UNK, QD
     Route: 048
     Dates: start: 20021101, end: 20100301
  5. GABAPENTIN [Concomitant]
     Indication: NEURALGIA
     Dosage: 300 MG, TID
     Route: 048
     Dates: start: 20000501
  6. CALCIUM CARBONATE [Concomitant]
     Dosage: UNK UNK, QD
     Route: 048
     Dates: start: 20090701
  7. YASMIN [Suspect]
     Indication: ACNE
     Dosage: UNK UNK, QD
     Route: 048
     Dates: start: 20021101, end: 20100301
  8. MULTI-VITAMIN [Concomitant]
     Dosage: UNK UNK, QD
     Route: 048
     Dates: start: 20090701, end: 20100327

REACTIONS (1)
  - PULMONARY EMBOLISM [None]
